FAERS Safety Report 21973608 (Version 5)
Quarter: 2023Q2

REPORT INFORMATION
  Report Type: Spontaneous
  Country: JP (occurrence: JP)
  Receive Date: 20230209
  Receipt Date: 20230413
  Transmission Date: 20230722
  Serious: Yes (Hospitalization, Other)
  Sender: FDA-Public Use
  Company Number: JP-JNJFOC-20210555078

PATIENT
  Age: 76 Year
  Sex: Female
  Weight: 44.6 kg

DRUGS (37)
  1. IMBRUVICA [Suspect]
     Active Substance: IBRUTINIB
     Indication: B-cell small lymphocytic lymphoma
     Dosage: IN THE MORNING
     Route: 048
     Dates: start: 20191203, end: 20191207
  2. IMBRUVICA [Suspect]
     Active Substance: IBRUTINIB
     Indication: B-cell small lymphocytic lymphoma
     Dosage: IN THE MORNING
     Route: 048
     Dates: start: 20191218, end: 20200128
  3. ELDECALCITOL [Concomitant]
     Active Substance: ELDECALCITOL
     Indication: Osteoporosis
     Dosage: IN THE MORNING, ELDECALCITOL
     Route: 048
  4. FUROSEMIDE [Concomitant]
     Active Substance: FUROSEMIDE
     Indication: Cardiac failure chronic
     Dosage: IN THE MORNING
     Route: 048
  5. AZILSARTAN KAMEDOXOMIL [Concomitant]
     Active Substance: AZILSARTAN KAMEDOXOMIL
     Indication: Hypertension
     Dosage: IN THE MORNING
     Route: 048
  6. AZILSARTAN KAMEDOXOMIL [Concomitant]
     Active Substance: AZILSARTAN KAMEDOXOMIL
     Indication: Hypertension
     Route: 048
  7. SPIRONOLACTONE [Concomitant]
     Active Substance: SPIRONOLACTONE
     Indication: Cardiac failure chronic
     Dosage: IN THE MORNING
     Route: 048
  8. MAGNESIUM OXIDE [Concomitant]
     Active Substance: MAGNESIUM OXIDE
     Indication: Constipation
     Dosage: IN THE MORNING AND EVENING
     Route: 048
  9. ELIQUIS [Concomitant]
     Active Substance: APIXABAN
     Indication: Atrial fibrillation
     Dosage: IN THE MORNING AND EVENING
     Route: 048
  10. ELIQUIS [Concomitant]
     Active Substance: APIXABAN
     Indication: Atrial fibrillation
     Dosage: IN THE MORNING AND EVENING
     Route: 048
  11. XYZAL [Concomitant]
     Active Substance: LEVOCETIRIZINE DIHYDROCHLORIDE
     Indication: Rhinitis allergic
     Dosage: AT BEDTIME
     Route: 048
  12. ACYCLOVIR [Concomitant]
     Active Substance: ACYCLOVIR
     Indication: Prophylaxis
     Route: 048
  13. AMIODARONE HYDROCHLORIDE [Suspect]
     Active Substance: AMIODARONE HYDROCHLORIDE
     Indication: Atrial fibrillation
     Dosage: IN THE MORNING AND EVENING
     Route: 048
     Dates: end: 20210405
  14. AMLODIPINE [Concomitant]
     Active Substance: AMLODIPINE BESYLATE
     Indication: Product used for unknown indication
     Route: 048
  15. JUVELA [Concomitant]
     Active Substance: .ALPHA.-TOCOPHEROL\RETINOL
     Indication: Hypertension
     Route: 048
  16. RITUXIMAB [Concomitant]
     Active Substance: RITUXIMAB
     Indication: B-cell small lymphocytic lymphoma
     Dosage: UNKNOWN
     Route: 041
  17. RITUXIMAB [Concomitant]
     Active Substance: RITUXIMAB
     Indication: B-cell small lymphocytic lymphoma
     Dosage: UNKNOWN
     Route: 041
  18. RITUXIMAB [Concomitant]
     Active Substance: RITUXIMAB
     Indication: B-cell small lymphocytic lymphoma
     Dosage: UNKNOWN
     Route: 041
  19. RITUXIMAB [Concomitant]
     Active Substance: RITUXIMAB
     Indication: B-cell small lymphocytic lymphoma
     Dosage: UNKNOWN
     Route: 041
  20. RITUXIMAB [Concomitant]
     Active Substance: RITUXIMAB
     Indication: B-cell small lymphocytic lymphoma
     Dosage: UNKNOWN
     Route: 065
  21. SULFAMETHOXAZOLE\TRIMETHOPRIM [Concomitant]
     Active Substance: SULFAMETHOXAZOLE\TRIMETHOPRIM
     Indication: Prophylaxis
     Route: 048
  22. SULFAMETHOXAZOLE\TRIMETHOPRIM [Concomitant]
     Active Substance: SULFAMETHOXAZOLE\TRIMETHOPRIM
     Indication: Prophylaxis
  23. FEBUXOSTAT [Concomitant]
     Active Substance: FEBUXOSTAT
     Indication: Hyperuricaemia
     Route: 048
  24. LUNESTA [Concomitant]
     Active Substance: ESZOPICLONE
     Indication: Insomnia
     Route: 048
  25. FLUCONAZOLE [Concomitant]
     Active Substance: FLUCONAZOLE
     Indication: Prophylaxis
     Route: 048
  26. VENETOCLAX [Concomitant]
     Active Substance: VENETOCLAX
     Indication: B-cell small lymphocytic lymphoma
     Route: 048
  27. VENETOCLAX [Concomitant]
     Active Substance: VENETOCLAX
     Indication: B-cell small lymphocytic lymphoma
     Dosage: INITIATED AT A DOSE OF 10 MG, HALF A USUAL DOSE, BECAUSE OF THE CONCOMITANT USE OF CYP3A INHIBITORS.
     Route: 048
  28. VENETOCLAX [Concomitant]
     Active Substance: VENETOCLAX
     Indication: B-cell small lymphocytic lymphoma
     Dosage: INITIATED AT A DOSE OF 10 MG, HALF A USUAL DOSE, BECAUSE OF THE CONCOMITANT USE OF CYP3A INHIBITORS.
     Route: 048
  29. VENETOCLAX [Concomitant]
     Active Substance: VENETOCLAX
     Indication: B-cell small lymphocytic lymphoma
     Dosage: INITIATED AT A DOSE OF 10 MG, HALF A USUAL DOSE, BECAUSE OF THE CONCOMITANT USE OF CYP3A INHIBITORS.
     Route: 048
  30. VENETOCLAX [Concomitant]
     Active Substance: VENETOCLAX
     Indication: B-cell small lymphocytic lymphoma
     Dosage: INITIATED AT A DOSE OF 10 MG, HALF A USUAL DOSE, BECAUSE OF THE CONCOMITANT USE OF CYP3A INHIBITORS.
     Route: 048
  31. VENETOCLAX [Concomitant]
     Active Substance: VENETOCLAX
     Indication: B-cell small lymphocytic lymphoma
     Dosage: INITIATED AT A DOSE OF 10 MG, HALF A USUAL DOSE, BECAUSE OF THE CONCOMITANT USE OF CYP3A INHIBITORS.
     Route: 048
  32. BISOPROLOL [Suspect]
     Active Substance: BISOPROLOL
     Indication: Product used for unknown indication
     Dosage: DOSE UNKNOWN
     Route: 062
     Dates: end: 20210405
  33. BISOPROLOL [Suspect]
     Active Substance: BISOPROLOL
     Indication: Product used for unknown indication
     Dosage: DOSE UNKNOWN
     Route: 062
     Dates: end: 20210405
  34. BISOPROLOL [Suspect]
     Active Substance: BISOPROLOL
     Indication: Product used for unknown indication
     Dosage: DOSE UNKNOWN
     Route: 062
     Dates: end: 20210405
  35. ZOLPIDEM TARTRATE [Concomitant]
     Active Substance: ZOLPIDEM TARTRATE
     Indication: Insomnia
     Route: 048
  36. ZOLPIDEM TARTRATE [Concomitant]
     Active Substance: ZOLPIDEM TARTRATE
     Indication: Insomnia
     Route: 048
  37. VIVIANT [Concomitant]
     Active Substance: BAZEDOXIFENE
     Indication: Osteoporosis
     Route: 048

REACTIONS (4)
  - Cardiomyopathy [Recovering/Resolving]
  - Cardiac failure chronic [Recovering/Resolving]
  - Supraventricular tachycardia [Recovered/Resolved]
  - Sinus node dysfunction [Recovered/Resolved]

NARRATIVE: CASE EVENT DATE: 20191207
